FAERS Safety Report 4314399-8 (Version None)
Quarter: 2004Q1

REPORT INFORMATION
  Report Type: 
  Country: None (occurrence: None)
  Receive Date: 20040309
  Receipt Date: 20040224
  Transmission Date: 20041129
  Serious: Yes (Disabling)
  Sender: FDA-Public Use
  Company Number: US-GLAXOSMITHKLINE-A0501135A

PATIENT
  Age: 50 Year
  Sex: Female

DRUGS (17)
  1. ROSIGLITAZONE MALEATE [Suspect]
     Indication: DIABETES MELLITUS
     Dosage: 4MG PER DAY
     Route: 048
     Dates: start: 20010613
  2. METFORMIN [Suspect]
     Indication: DIABETES MELLITUS
     Dates: start: 20001124, end: 20010626
  3. GLYBURIDE [Suspect]
     Indication: DIABETES MELLITUS
     Dates: start: 20001124, end: 20010626
  4. BLINDED TRIAL MEDICATION [Suspect]
     Indication: DIABETES MELLITUS
  5. DIOVAN [Concomitant]
     Dates: start: 20001212
  6. CLARITIN [Concomitant]
     Dates: start: 20000523
  7. ASPIRIN [Concomitant]
     Route: 048
  8. NORFLEX [Concomitant]
  9. VIOXX [Concomitant]
  10. PERCOCET [Concomitant]
  11. ATROVENT [Concomitant]
  12. VENLAFAXINE HCL [Concomitant]
  13. ACETAMINOPHEN [Concomitant]
  14. VERAPAMIL [Concomitant]
  15. ISOSORBIDE MONONITRATE [Concomitant]
  16. HYDROCHLOROTHIAZIDE [Concomitant]
  17. ADVAIR DISKUS 100/50 [Concomitant]

REACTIONS (11)
  - CARDIOMYOPATHY [None]
  - CORONARY ARTERY DISEASE [None]
  - DYSPNOEA [None]
  - DYSPNOEA EXACERBATED [None]
  - EJECTION FRACTION DECREASED [None]
  - FATIGUE [None]
  - HYPOKINESIA [None]
  - PALPITATIONS [None]
  - RESTRICTIVE PULMONARY DISEASE [None]
  - VENTRICULAR DYSFUNCTION [None]
  - VENTRICULAR EXTRASYSTOLES [None]
